FAERS Safety Report 9100195 (Version 2)
Quarter: 2013Q1

REPORT INFORMATION
  Report Type: Spontaneous
  Country: US (occurrence: US)
  Receive Date: 20130215
  Receipt Date: 20130313
  Transmission Date: 20140127
  Serious: No
  Sender: FDA-Public Use
  Company Number: US-PFIZER INC-2013059134

PATIENT
  Age: 84 Year
  Sex: Female
  Weight: 88.44 kg

DRUGS (2)
  1. FLECTOR [Suspect]
     Indication: OSTEOARTHRITIS
     Dosage: UNK, 2X/DAY
     Route: 062
     Dates: start: 201212
  2. FLECTOR [Suspect]
     Dosage: UNK

REACTIONS (3)
  - Drug ineffective [Unknown]
  - Nausea [Recovered/Resolved]
  - Dizziness [Recovered/Resolved]
